FAERS Safety Report 5089158-1 (Version None)
Quarter: 2006Q3

REPORT INFORMATION
  Report Type: 
  Country: None (occurrence: None)
  Receive Date: 20060727
  Receipt Date: 20060529
  Transmission Date: 20061208
  Serious: Yes (Other)
  Sender: FDA-Public Use
  Company Number: 2006070361

PATIENT
  Age: 60 Year
  Sex: Female
  Weight: 81.6475 kg

DRUGS (2)
  1. LYRICA [Suspect]
     Indication: PANIC DISORDER
     Dosage: (50 MG, UNKNOWN)
     Dates: start: 20060501
  2. LORAZEPAM [Suspect]
     Indication: PANIC DISORDER

REACTIONS (2)
  - DIZZINESS [None]
  - HYPOAESTHESIA ORAL [None]
